FAERS Safety Report 11319416 (Version 1)
Quarter: 2015Q3

REPORT INFORMATION
  Report Type: Report from Study
  Country: KR (occurrence: KR)
  Receive Date: 20150729
  Receipt Date: 20150729
  Transmission Date: 20151125
  Serious: Yes (Hospitalization)
  Sender: FDA-Public Use
  Company Number: KR-AMGEN-KORNI2015075749

PATIENT
  Age: 50 Year
  Sex: Male

DRUGS (5)
  1. VASTINAN [Concomitant]
     Indication: CORONARY ARTERY OCCLUSION
     Dosage: UNK
     Dates: start: 20140929
  2. NEUSTATIN [Concomitant]
     Indication: HYPERLIPIDAEMIA
     Dosage: UNK
     Dates: start: 20141001
  3. NEXIUM [Concomitant]
     Active Substance: ESOMEPRAZOLE MAGNESIUM
     Dosage: UNK
     Dates: start: 20141105
  4. CLOPIRIN [Concomitant]
     Dosage: UNK
     Dates: start: 20140922
  5. IVABRADINE [Suspect]
     Active Substance: IVABRADINE
     Indication: CARDIAC FAILURE CHRONIC
     Dosage: 10 MG, QD
     Route: 048
     Dates: start: 20141203, end: 20141204

REACTIONS (1)
  - Asthenia [Not Recovered/Not Resolved]

NARRATIVE: CASE EVENT DATE: 20141204
